FAERS Safety Report 6235109-3 (Version None)
Quarter: 2009Q2

REPORT INFORMATION
  Report Type: 
  Country: None (occurrence: None)
  Receive Date: 20090618
  Receipt Date: 20090617
  Transmission Date: 20091009
  Serious: No
  Sender: FDA-Public Use
  Company Number: US-B.I. PHARMACEUTICALS,INC./RIDGEFIELD-2009-BP-06877BP

PATIENT
  Sex: Male

DRUGS (5)
  1. FLOMAX [Suspect]
     Indication: CALCULUS URINARY
     Dosage: .4MG
     Route: 048
     Dates: start: 20090601, end: 20090601
  2. GLUCOVANCE [Concomitant]
     Indication: DIABETES MELLITUS
  3. LIPITOR [Concomitant]
     Dosage: 80MG
  4. FOLIC ACID [Concomitant]
  5. ASPIRIN [Concomitant]

REACTIONS (1)
  - HYPERHIDROSIS [None]
